FAERS Safety Report 6647982-5 (Version None)
Quarter: 2010Q1

REPORT INFORMATION
  Report Type: 
  Country: None (occurrence: None)
  Receive Date: 20100319
  Receipt Date: 20100305
  Transmission Date: 20100710
  Serious: Yes (Other)
  Sender: FDA-Public Use
  Company Number: 2010S1001513

PATIENT
  Age: 46 Year
  Sex: Male

DRUGS (5)
  1. PHOSPHOSODA FLAVOR NOT SPECIFIED [Suspect]
     Indication: COLONOSCOPY
     Dosage: PO
     Route: 048
     Dates: start: 19981221
  2. HUMULIN /00646001 [Concomitant]
  3. GLUCOPHAGE [Concomitant]
  4. DEMADEX [Concomitant]
  5. ZESTRIL [Concomitant]

REACTIONS (3)
  - PERITONEAL DIALYSIS [None]
  - RENAL DISORDER [None]
  - RENAL TRANSPLANT [None]
